FAERS Safety Report 11511402 (Version 2)
Quarter: 2015Q4

REPORT INFORMATION
  Report Type: Report from Study
  Country: US (occurrence: US)
  Receive Date: 20150915
  Receipt Date: 20151006
  Transmission Date: 20160304
  Serious: No
  Sender: FDA-Public Use
  Company Number: PHEH2015US017892

PATIENT
  Sex: Female
  Weight: 67.5 kg

DRUGS (2)
  1. GILENYA [Suspect]
     Active Substance: FINGOLIMOD HYDROCHLORIDE
     Indication: MULTIPLE SCLEROSIS
     Dosage: 0.5 MG, QD
     Route: 048
     Dates: start: 20150606
  2. ONE A DAY                          /02262701/ [Concomitant]
     Active Substance: VITAMINS
     Indication: VITAMIN SUPPLEMENTATION
     Dosage: UNK
     Route: 065

REACTIONS (8)
  - Multiple sclerosis relapse [Recovering/Resolving]
  - Optic neuritis [Recovering/Resolving]
  - Headache [Recovering/Resolving]
  - Extraocular muscle paresis [Recovering/Resolving]
  - Hot flush [Not Recovered/Not Resolved]
  - Ocular discomfort [Recovering/Resolving]
  - Stress [Recovering/Resolving]
  - Pain [Recovering/Resolving]
